FAERS Safety Report 10146877 (Version 1)
Quarter: 2014Q2

REPORT INFORMATION
  Report Type: Spontaneous
  Country: US (occurrence: None)
  Receive Date: 20140430
  Receipt Date: 20140430
  Transmission Date: 20141212
  Serious: Yes (Hospitalization)
  Sender: FDA-Public Use
  Company Number: None

PATIENT
  Age: 81 Year
  Sex: Male

DRUGS (10)
  1. INSULIN [Suspect]
     Indication: HYPERGLYCAEMIA
     Dosage: GLARGINE 10 UNITS
     Route: 058
     Dates: start: 20130709, end: 20130716
  2. ATORVASTARIN [Concomitant]
  3. HEPARIN [Concomitant]
  4. CARVEDILOL [Concomitant]
  5. CEFEPIME [Concomitant]
  6. ETHACRYNIC ACID [Concomitant]
  7. FERROUS SULFATE [Concomitant]
  8. INSULIN ASPART [Concomitant]
  9. LANSOPRAZOLE [Concomitant]
  10. METRONIDAZOLE [Concomitant]

REACTIONS (2)
  - Disorientation [None]
  - Blood glucose decreased [None]
